FAERS Safety Report 13526266 (Version 6)
Quarter: 2017Q4

REPORT INFORMATION
  Report Type: Report from Study
  Country: None (occurrence: RO)
  Receive Date: 20170509
  Receipt Date: 20171007
  Transmission Date: 20180320
  Serious: Yes (Hospitalization, Other)
  Sender: FDA-Public Use
  Company Number: RO-ABBVIE-17K-135-1965207-00

PATIENT
  Age: 64 Year
  Sex: Female

DRUGS (9)
  1. HUMIRA [Suspect]
     Active Substance: ADALIMUMAB
     Route: 058
     Dates: start: 20170627, end: 20170627
  2. PRESTARIUM [Concomitant]
     Active Substance: PERINDOPRIL
     Indication: BLOOD PRESSURE FLUCTUATION
     Route: 048
  3. TERTENSIF [Concomitant]
     Active Substance: INDAPAMIDE
     Indication: BLOOD PRESSURE FLUCTUATION
     Route: 048
  4. CARVEDILOL. [Concomitant]
     Active Substance: CARVEDILOL
     Indication: BLOOD PRESSURE FLUCTUATION
     Route: 048
  5. HUMIRA [Suspect]
     Active Substance: ADALIMUMAB
     Route: 058
     Dates: start: 20170903, end: 201709
  6. PREDUCTAL [Concomitant]
     Active Substance: TRIMETAZIDINE DIHYDROCHLORIDE
     Indication: BLOOD PRESSURE FLUCTUATION
     Route: 048
  7. HUMIRA [Suspect]
     Active Substance: ADALIMUMAB
     Indication: RHEUMATOID ARTHRITIS
     Route: 058
     Dates: start: 20121215, end: 201512
  8. HUMIRA [Suspect]
     Active Substance: ADALIMUMAB
     Route: 058
     Dates: start: 2017
  9. HUMIRA [Suspect]
     Active Substance: ADALIMUMAB
     Route: 058
     Dates: start: 201602, end: 20170503

REACTIONS (14)
  - Pain [Not Recovered/Not Resolved]
  - Neck pain [Not Recovered/Not Resolved]
  - Respiratory tract infection viral [Recovered/Resolved]
  - Depression [Not Recovered/Not Resolved]
  - Psoriasis [Recovered/Resolved]
  - Psoriasis [Not Recovered/Not Resolved]
  - Vertebral osteophyte [Not Recovered/Not Resolved]
  - Pulmonary mass [Recovered/Resolved]
  - Rash [Recovered/Resolved]
  - Computerised tomogram thorax abnormal [Not Recovered/Not Resolved]
  - Type 2 diabetes mellitus [Not Recovered/Not Resolved]
  - Pain in extremity [Not Recovered/Not Resolved]
  - Thyroid disorder [Not Recovered/Not Resolved]
  - Influenza [Recovered/Resolved]

NARRATIVE: CASE EVENT DATE: 201212
